FAERS Safety Report 6341220-9 (Version None)
Quarter: 2009Q3

REPORT INFORMATION
  Report Type: 
  Country: None (occurrence: None)
  Receive Date: 20090904
  Receipt Date: 20090603
  Transmission Date: 20100115
  Serious: No
  Sender: FDA-Public Use
  Company Number: A0788580A

PATIENT
  Age: 50 Year
  Sex: Female

DRUGS (4)
  1. REQUIP [Suspect]
     Indication: RESTLESS LEGS SYNDROME
     Dosage: 8MG AT NIGHT
     Route: 048
  2. COREG [Concomitant]
  3. BESTATIN [Concomitant]
  4. KLONOPIN [Concomitant]

REACTIONS (4)
  - AMNESIA [None]
  - EXCESSIVE SEXUAL FANTASIES [None]
  - SLEEP TALKING [None]
  - SOMNOLENCE [None]
